FAERS Safety Report 6648372-1 (Version None)
Quarter: 2010Q1

REPORT INFORMATION
  Report Type: 
  Country: None (occurrence: None)
  Receive Date: 20100318
  Receipt Date: 20100308
  Transmission Date: 20100710
  Serious: Yes (Hospitalization, Other)
  Sender: FDA-Public Use
  Company Number: 100310-0000259

PATIENT
  Age: 15 Year
  Sex: Male

DRUGS (10)
  1. ELSPAR (ASPARAGINASE) [Suspect]
     Indication: PRECURSOR B-LYMPHOBLASTIC LYMPHOMA
  2. VINCRISTINE [Suspect]
     Indication: PRECURSOR B-LYMPHOBLASTIC LYMPHOMA
  3. PREDNISONE [Suspect]
     Indication: PRECURSOR B-LYMPHOBLASTIC LYMPHOMA
  4. DAUNORUBICIN HCL [Suspect]
     Indication: PRECURSOR B-LYMPHOBLASTIC LYMPHOMA
  5. CYCLOPHOSPHAMIDE [Suspect]
     Indication: PRECURSOR B-LYMPHOBLASTIC LYMPHOMA
  6. MERCAPTOPURINE [Suspect]
     Indication: PRECURSOR B-LYMPHOBLASTIC LYMPHOMA
  7. HYDROCORTONE [Suspect]
     Indication: PRECURSOR B-LYMPHOBLASTIC LYMPHOMA
     Dosage: INTH
     Route: 037
  8. METHOTREXATE [Suspect]
     Indication: PRECURSOR B-LYMPHOBLASTIC LYMPHOMA
     Dosage: INTH
     Route: 037
  9. CYTARABINE [Suspect]
     Indication: PRECURSOR B-LYMPHOBLASTIC LYMPHOMA
     Dosage: INTH
     Route: 037
  10. DOXORUBICIN HCL [Suspect]
     Indication: PRECURSOR B-LYMPHOBLASTIC LYMPHOMA

REACTIONS (11)
  - B PRECURSOR TYPE ACUTE LEUKAEMIA [None]
  - CEREBRAL DISORDER [None]
  - COAGULOPATHY [None]
  - COMPLEX PARTIAL SEIZURES [None]
  - CONFUSIONAL STATE [None]
  - GLIOSIS [None]
  - HERPES ZOSTER [None]
  - HYPOMETABOLISM [None]
  - LEUKAEMIA RECURRENT [None]
  - MUMPS [None]
  - NO THERAPEUTIC RESPONSE [None]
